FAERS Safety Report 24253954 (Version 1)
Quarter: 2024Q3

REPORT INFORMATION
  Report Type: Spontaneous
  Country: US (occurrence: US)
  Receive Date: 20240827
  Receipt Date: 20240827
  Transmission Date: 20241017
  Serious: No
  Sender: INCYTE
  Company Number: US-INCYTE CORPORATION-2024IN008595

PATIENT

DRUGS (1)
  1. JAKAFI [Suspect]
     Active Substance: RUXOLITINIB
     Indication: Myelofibrosis
     Dosage: 15 MILLIGRAM (1 TABLET 4 TIMES A WEEK ON SUNDAY, MONDAY, WEDNESDAY, AND FRIDAY EACH WEEK)
     Route: 048
     Dates: start: 202107

REACTIONS (2)
  - Inappropriate schedule of product administration [Unknown]
  - Contusion [Unknown]
